FAERS Safety Report 16491956 (Version 1)
Quarter: 2019Q2

REPORT INFORMATION
  Report Type: Spontaneous
  Country: US (occurrence: US)
  Receive Date: 20190518
  Receipt Date: 20190518
  Transmission Date: 20190711
  Serious: Yes (Hospitalization)
  Sender: FDA-Public Use
  Company Number: None

PATIENT
  Age: 82 Year
  Sex: Female
  Weight: 60.3 kg

DRUGS (2)
  1. BEVACIZUMAB (RHUMAB VEGF) [Suspect]
     Active Substance: BEVACIZUMAB
     Dates: end: 20190424
  2. DOXIL [Suspect]
     Active Substance: DOXORUBICIN HYDROCHLORIDE
     Dates: end: 20190410

REACTIONS (9)
  - Colitis [None]
  - Metastases to peritoneum [None]
  - Large intestinal stenosis [None]
  - Ileus [None]
  - Clostridium difficile infection [None]
  - Gastrointestinal hypomotility [None]
  - Diarrhoea [None]
  - Hypertension [None]
  - Ascites [None]

NARRATIVE: CASE EVENT DATE: 20190426
